FAERS Safety Report 7572462-2 (Version None)
Quarter: 2011Q2

REPORT INFORMATION
  Report Type: 
  Country: None (occurrence: None)
  Receive Date: 20110624
  Receipt Date: 20110615
  Transmission Date: 20111010
  Serious: Yes (Hospitalization, Other)
  Sender: FDA-Public Use
  Company Number: US-AMGEN-USASP2011030730

PATIENT

DRUGS (1)
  1. ENBREL [Suspect]
     Dosage: 50 MG, PRN
     Route: 064
     Dates: start: 20050205, end: 20060901

REACTIONS (2)
  - ASTHMA [None]
  - NEONATAL ASPIRATION [None]
